FAERS Safety Report 8896711 (Version 1)
Quarter: 2012Q4

REPORT INFORMATION
  Report Type: 
  Country: US (occurrence: US)
  Receive Date: 20121108
  Receipt Date: 20121108
  Transmission Date: 20130627
  Serious: No
  Sender: FDA-Public Use
  Company Number: US-AMGEN-USASP2012026724

PATIENT
  Sex: Male

DRUGS (8)
  1. ENBREL [Suspect]
     Indication: PRODUCT USED FOR UNKNOWN INDICATION
     Dosage: 50 mg, qwk
     Route: 058
  2. FUROSEMIDE [Concomitant]
     Dosage: 20 mg, UNK
  3. LIPITOR [Concomitant]
     Dosage: 80 mg, UNK
  4. AVAPRO [Concomitant]
     Dosage: 300 mg, UNK
  5. METFORMIN [Concomitant]
     Dosage: 850 mg, UNK
  6. ALLOPURINOL [Concomitant]
     Dosage: 300 mg, UNK
  7. FISH OIL [Concomitant]
     Dosage: UNK
  8. ASA [Concomitant]
     Dosage: 81 mg, UNK

REACTIONS (1)
  - Therapeutic response decreased [Unknown]
